FAERS Safety Report 5843528-X (Version None)
Quarter: 2008Q3

REPORT INFORMATION
  Report Type: 
  Country: None (occurrence: None)
  Receive Date: 20080813
  Receipt Date: 20080807
  Transmission Date: 20090109
  Serious: Yes (Other)
  Sender: FDA-Public Use
  Company Number: US-ASTRAZENECA-2008UW15665

PATIENT
  Age: 86 Year
  Sex: Female

DRUGS (3)
  1. ARIMIDEX [Suspect]
     Indication: MASTECTOMY
     Route: 048
  2. DETROL LA [Concomitant]
  3. NEXIUM [Concomitant]
     Route: 048

REACTIONS (1)
  - HAEMORRHAGE [None]
